FAERS Safety Report 12386119 (Version 1)
Quarter: 2016Q2

REPORT INFORMATION
  Report Type: Spontaneous
  Country: US (occurrence: US)
  Receive Date: 20160519
  Receipt Date: 20160519
  Transmission Date: 20160815
  Serious: No
  Sender: FDA-Public Use
  Company Number: US-NOVOPROD-471429

PATIENT
  Age: 61 Year
  Sex: Female

DRUGS (1)
  1. ACTIVELLA [Suspect]
     Active Substance: ESTRADIOL\NORETHINDRONE ACETATE
     Indication: PRODUCT USED FOR UNKNOWN INDICATION
     Route: 048

REACTIONS (5)
  - Product quality issue [Not Recovered/Not Resolved]
  - Erythema [Not Recovered/Not Resolved]
  - Mood swings [Not Recovered/Not Resolved]
  - Drug ineffective [None]
  - Hot flush [Not Recovered/Not Resolved]
